FAERS Safety Report 11798740 (Version 2)
Quarter: 2015Q4

REPORT INFORMATION
  Report Type: Spontaneous
  Country: US (occurrence: US)
  Receive Date: 20151203
  Receipt Date: 20151224
  Transmission Date: 20160305
  Serious: Yes (Death)
  Sender: FDA-Public Use
  Company Number: US-INCYTE CORPORATION-2015IN006323

PATIENT
  Age: 62 Year
  Sex: Male

DRUGS (1)
  1. JAKAFI [Suspect]
     Active Substance: RUXOLITINIB
     Indication: MYELOFIBROSIS
     Dosage: 5 MG, BID
     Route: 048
     Dates: start: 20150612, end: 201511

REACTIONS (3)
  - Myelofibrosis [Fatal]
  - Off label use [Unknown]
  - Acute leukaemia [Fatal]

NARRATIVE: CASE EVENT DATE: 20150612
